FAERS Safety Report 8125836-5 (Version None)
Quarter: 2012Q1

REPORT INFORMATION
  Report Type: 
  Country: None (occurrence: None)
  Receive Date: 20120209
  Receipt Date: 20120131
  Transmission Date: 20120608
  Serious: Yes (Other)
  Sender: FDA-Public Use
  Company Number: US-ABBOTT-12P-163-0899599-00

PATIENT
  Sex: Male
  Weight: 97.61 kg

DRUGS (4)
  1. SULFASALAZINE [Concomitant]
     Indication: PRODUCT USED FOR UNKNOWN INDICATION
  2. HUMIRA [Suspect]
     Indication: RHEUMATOID ARTHRITIS
     Dosage: ABOUT YEAR AGO
     Route: 058
     Dates: start: 20090101, end: 20110101
  3. HUMIRA [Suspect]
     Dates: start: 20110101
  4. METHOTREXATE [Suspect]
     Indication: PRODUCT USED FOR UNKNOWN INDICATION
     Dates: end: 20110901

REACTIONS (4)
  - NEPHROLITHIASIS [None]
  - DRUG INEFFECTIVE [None]
  - OSTEOARTHRITIS [None]
  - ARTHRALGIA [None]
